FAERS Safety Report 10714512 (Version 1)
Quarter: 2015Q1

REPORT INFORMATION
  Report Type: Spontaneous
  Country: DE (occurrence: DE)
  Receive Date: 20150115
  Receipt Date: 20150115
  Transmission Date: 20150721
  Serious: Yes (Other)
  Sender: FDA-Public Use
  Company Number: DE-TEVA-533778GER

PATIENT
  Age: 75 Year
  Sex: Male

DRUGS (2)
  1. NAB-PACLITAXEL [Suspect]
     Active Substance: PACLITAXEL
     Indication: PANCREATIC CARCINOMA METASTATIC
     Dosage: 100 OR 125 MG/M2; ON DAYS 1, 8 AND 15 OF A 28-DAY-CYCLE
     Route: 065
  2. GEMCITABINE [Suspect]
     Active Substance: GEMCITABINE\GEMCITABINE HYDROCHLORIDE
     Indication: PANCREATIC CARCINOMA METASTATIC
     Dosage: 1000 OR 800 MG/M2; ON DAYS 1, 8 AND 15 OF A 28-DAY-CYCLE
     Route: 065

REACTIONS (7)
  - Cholangitis [Unknown]
  - Thrombocytopenia [Unknown]
  - Paronychia [Unknown]
  - Neutropenia [Unknown]
  - Alopecia [Unknown]
  - Polyneuropathy [Unknown]
  - Pyrexia [Unknown]
